FAERS Safety Report 6664367-6 (Version None)
Quarter: 2010Q2

REPORT INFORMATION
  Report Type: 
  Country: None (occurrence: None)
  Receive Date: 20100401
  Receipt Date: 20100326
  Transmission Date: 20101027
  Serious: Yes (Hospitalization, Other)
  Sender: FDA-Public Use
  Company Number: PHHY2009AU53296

PATIENT
  Sex: Female

DRUGS (11)
  1. LOPRESSOR [Suspect]
     Dosage: 60 MG, BID
     Route: 048
  2. LOPRESSOR [Suspect]
     Dosage: 100 MG, BID
     Route: 048
  3. VALIUM [Concomitant]
  4. WARFARIN SODIUM [Concomitant]
  5. ACETAMINOPHEN W/ CODEINE [Concomitant]
     Indication: SMALL INTESTINAL OBSTRUCTION
     Dosage: 8-10 DAILY
  6. ACETAMINOPHEN W/ CODEINE [Concomitant]
     Dosage: 4 DAILY
  7. ATACAND [Concomitant]
     Dosage: 8 MG DAILY
  8. METFORMIN HCL [Concomitant]
     Dosage: 850 MG, BID
  9. DIAMICRON [Concomitant]
     Dosage: 80 MG, BID
  10. ZOCOR [Concomitant]
     Dosage: 40 MG, UNK
  11. NEXIUM [Concomitant]
     Dosage: 20 MG, UNK

REACTIONS (2)
  - APHASIA [None]
  - HALLUCINATION, VISUAL [None]
